FAERS Safety Report 7054312-6 (Version None)
Quarter: 2010Q4

REPORT INFORMATION
  Report Type: 
  Country: None (occurrence: None)
  Receive Date: 20101020
  Receipt Date: 20101007
  Transmission Date: 20110411
  Serious: Yes (Life-Threatening, Hospitalization, Disabling, Congenital Anomaly, Other)
  Sender: FDA-Public Use
  Company Number: US-PFIZER INC-2007095328

PATIENT
  Sex: Female
  Weight: 3 kg

DRUGS (4)
  1. ZOLOFT [Suspect]
     Indication: PANIC DISORDER
     Dosage: 50 MG, 1X/DAY
     Route: 064
     Dates: start: 20040412
  2. NORMAL SALINE [Concomitant]
     Route: 064
  3. ANCEF [Concomitant]
     Route: 064
  4. PRENATAL VITAMINS [Concomitant]

REACTIONS (7)
  - AORTIC VALVE STENOSIS [None]
  - CARDIAC FAILURE [None]
  - CARDIAC MURMUR [None]
  - CARDIOMEGALY [None]
  - DRUG EXPOSURE DURING PREGNANCY [None]
  - GASTROOESOPHAGEAL REFLUX DISEASE [None]
  - PNEUMONIA [None]
